FAERS Safety Report 9985021 (Version 1)
Quarter: 2014Q1

REPORT INFORMATION
  Report Type: Report from Study
  Country: US (occurrence: US)
  Receive Date: 20140307
  Receipt Date: 20140307
  Transmission Date: 20141002
  Serious: No
  Sender: FDA-Public Use
  Company Number: US-ABBVIE-13P-163-1184624-00

PATIENT
  Age: 64 Year
  Sex: Male

DRUGS (5)
  1. HUMIRA [Suspect]
     Indication: ANKYLOSING SPONDYLITIS
     Dates: start: 20131128
  2. OXYCONTIN [Concomitant]
     Indication: PAIN
  3. PREDNISONE [Concomitant]
     Indication: ANKYLOSING SPONDYLITIS
     Dosage: TAPER
  4. HCTZ [Concomitant]
     Indication: HYPERTENSION
  5. PERIODIC EPIDURAL INJECTIONS OF SPINE [Concomitant]
     Indication: ANKYLOSING SPONDYLITIS

REACTIONS (2)
  - Back pain [Not Recovered/Not Resolved]
  - Muscle spasms [Not Recovered/Not Resolved]
